FAERS Safety Report 4457752-4 (Version None)
Quarter: 2004Q3

REPORT INFORMATION
  Report Type: 
  Country: None (occurrence: None)
  Receive Date: 20040922
  Receipt Date: 20040909
  Transmission Date: 20050211
  Serious: Yes (Hospitalization)
  Sender: FDA-Public Use
  Company Number: 2003124700

PATIENT
  Sex: Female

DRUGS (2)
  1. LUSTRAL (SERTRALINE ) [Suspect]
     Indication: ILL-DEFINED DISORDER
     Dosage: 150 MG (1 IN 1 D), ORAL
     Route: 048
  2. ANTIBIOTICS (ANTIBIOTICS) [Suspect]
     Indication: ILL-DEFINED DISORDER

REACTIONS (4)
  - CIRCULATORY COLLAPSE [None]
  - ENZYME ABNORMALITY [None]
  - FEELING ABNORMAL [None]
  - TACHYCARDIA [None]
